FAERS Safety Report 10475088 (Version 1)
Quarter: 2014Q3

REPORT INFORMATION
  Report Type: Spontaneous
  Country: US (occurrence: None)
  Receive Date: 20140924
  Receipt Date: 20140924
  Transmission Date: 20150326
  Serious: Yes (Death)
  Sender: FDA-Public Use
  Company Number: None

PATIENT
  Age: 77 Year
  Sex: Female
  Weight: 53 kg

DRUGS (12)
  1. METOPROLOL TARTRATE (AKA LOPRESSOR) [Concomitant]
  2. ZOLPIDEM (AKA AMBIEN) [Concomitant]
  3. RIVAROXABAN [Suspect]
     Active Substance: RIVAROXABAN
     Indication: ATRIAL FIBRILLATION
     Dosage: 1 TABLET QD ORAL
     Route: 048
     Dates: start: 20140521, end: 20140904
  4. NITROGLYCERIN (AKA NITROQUICK) [Concomitant]
  5. SIMVASTATIN (AKA ZOCOR) [Concomitant]
  6. LISINOPRIL. [Concomitant]
     Active Substance: LISINOPRIL
  7. OMEGA-3 FATTY ACIDS (AKA MAXEPA,FISH OIL) [Concomitant]
  8. ACETAMINOPHEN (AKA TYLENOL EXTRA STRENGTH) [Concomitant]
  9. CLOPIDOGREL (AKA PLAVIX) [Concomitant]
  10. ISOSORBIDE DINITRATE (AKA ISORDIL) [Concomitant]
  11. ASPIRIN. [Concomitant]
     Active Substance: ASPIRIN
  12. CALCIUM CARBONATE-VITAMIN D [Concomitant]
     Active Substance: CALCIUM CARBONATE\VITAMIN D

REACTIONS (3)
  - Mental status changes [None]
  - Hypercapnia [None]
  - Cerebral haemorrhage [None]

NARRATIVE: CASE EVENT DATE: 20140903
